FAERS Safety Report 8620147-3 (Version None)
Quarter: 2012Q3

REPORT INFORMATION
  Report Type: 
  Country: None (occurrence: None)
  Receive Date: 20120824
  Receipt Date: 20120817
  Transmission Date: 20120928
  Serious: No
  Sender: FDA-Public Use
  Company Number: US-009507513-1208USA008400

PATIENT

DRUGS (4)
  1. NASONEX [Suspect]
     Dosage: 2 DF, QD
     Route: 055
     Dates: start: 20120717
  2. ACTOS [Concomitant]
  3. METFORMIN HCL [Concomitant]
  4. GLUCOTROL [Concomitant]

REACTIONS (3)
  - DRY EYE [None]
  - EYE IRRITATION [None]
  - EYE PRURITUS [None]
